FAERS Safety Report 10557971 (Version 1)
Quarter: 2014Q4

REPORT INFORMATION
  Report Type: Spontaneous
  Country: TR (occurrence: None)
  Receive Date: 20141029
  Receipt Date: 20141029
  Transmission Date: 20150529
  Serious: Yes (Hospitalization)
  Sender: FDA-Public Use
  Company Number: FK201404509

PATIENT
  Age: 14 Year
  Sex: Female

DRUGS (3)
  1. FENTANYL (FENTANYL) [Concomitant]
     Active Substance: FENTANYL
  2. VINBLASTINE [Suspect]
     Active Substance: VINBLASTINE
     Indication: FIBROMATOSIS
  3. METHOTREXATE (METHOTREXATE) [Concomitant]
     Active Substance: METHOTREXATE

REACTIONS (5)
  - Accidental overdose [None]
  - Bone marrow failure [None]
  - Mucosal inflammation [None]
  - Myalgia [None]
  - Inappropriate antidiuretic hormone secretion [None]
